FAERS Safety Report 18146186 (Version 1)
Quarter: 2020Q3

REPORT INFORMATION
  Report Type: Spontaneous
  Country: CA (occurrence: CA)
  Receive Date: 20200813
  Receipt Date: 20200813
  Transmission Date: 20201103
  Serious: Yes (Other)
  Sender: FDA-Public Use
  Company Number: CA-ANIPHARMA-2020-CA-001515

PATIENT
  Age: 65 Year
  Sex: Female

DRUGS (19)
  1. ROSUVASTATIN. [Concomitant]
     Active Substance: ROSUVASTATIN
     Route: 065
  2. ZOLPIDEM [Concomitant]
     Active Substance: ZOLPIDEM TARTRATE
     Route: 065
  3. CANDESARTAN. [Suspect]
     Active Substance: CANDESARTAN
     Indication: PRODUCT USED FOR UNKNOWN INDICATION
     Route: 048
  4. SECUKINUMAB. [Suspect]
     Active Substance: SECUKINUMAB
     Dosage: 300 MG MONTH / UNK / UNK / 300 MG MONTH / 300 MG MONTH
     Route: 058
  5. METFORMIN [Suspect]
     Active Substance: METFORMIN HYDROCHLORIDE
     Route: 065
  6. METHOTREXATE. [Suspect]
     Active Substance: METHOTREXATE
     Route: 065
  7. DOVONEX [Concomitant]
     Active Substance: CALCIPOTRIENE
     Route: 065
  8. ACITRETIN. [Concomitant]
     Active Substance: ACITRETIN
     Route: 065
  9. ASA [Concomitant]
     Active Substance: ASPIRIN
     Dosage: : 81 MG UNK
     Route: 065
  10. STELARA [Concomitant]
     Active Substance: USTEKINUMAB
     Route: 065
  11. AMEVIVE [Concomitant]
     Active Substance: ALEFACEPT
     Route: 065
  12. ERGOCALCIFEROL. [Suspect]
     Active Substance: ERGOCALCIFEROL
     Route: 065
  13. COAL TAR. [Concomitant]
     Active Substance: COAL TAR
     Route: 065
  14. PANTOPRAZOLE [Concomitant]
     Active Substance: PANTOPRAZOLE
     Route: 065
  15. BISOPROLOL [Suspect]
     Active Substance: BISOPROLOL
     Route: 065
  16. CALCIUM CARBONATE. [Suspect]
     Active Substance: CALCIUM CARBONATE
     Route: 065
  17. CYMBALTA [Concomitant]
     Active Substance: DULOXETINE HYDROCHLORIDE
     Route: 065
  18. JANUVIA [Concomitant]
     Active Substance: SITAGLIPTIN PHOSPHATE
     Route: 065
  19. SYNTHROID [Concomitant]
     Active Substance: LEVOTHYROXINE SODIUM
     Route: 065

REACTIONS (21)
  - Sinus disorder [Unknown]
  - Cough [Unknown]
  - Pneumonia [Unknown]
  - Skin haemorrhage [Unknown]
  - Vomiting [Unknown]
  - Headache [Unknown]
  - Influenza [Unknown]
  - Nausea [Unknown]
  - Fatigue [Unknown]
  - Pyrexia [Unknown]
  - Sinus congestion [Unknown]
  - Skin exfoliation [Unknown]
  - Cystitis [Unknown]
  - Psoriasis [Unknown]
  - Rhinorrhoea [Unknown]
  - Sneezing [Unknown]
  - Nasopharyngitis [Unknown]
  - Respiratory tract congestion [Unknown]
  - Malaise [Unknown]
  - Pain [Unknown]
  - Influenza like illness [Unknown]
